FAERS Safety Report 9171078 (Version 1)
Quarter: 2013Q1

REPORT INFORMATION
  Report Type: Spontaneous
  Country: BE (occurrence: None)
  Receive Date: 20130315
  Receipt Date: 20130315
  Transmission Date: 20140127
  Serious: Yes (Death, Hospitalization)
  Sender: FDA-Public Use
  Company Number: NSR_01062_2013

PATIENT
  Age: 35 Year
  Sex: Female

DRUGS (1)
  1. VENLAFAXINE [Suspect]
     Indication: PRODUCT USED FOR UNKNOWN INDICATION
     Dosage: (90 DF 1X, [INGESTED 90 TABLETS])

REACTIONS (13)
  - Grand mal convulsion [None]
  - Confusional state [None]
  - Agitation [None]
  - Overdose [None]
  - Hallucination, visual [None]
  - Tremor [None]
  - Cardiac arrest [None]
  - Atrial fibrillation [None]
  - Hypoglycaemia [None]
  - Tachycardia [None]
  - Nystagmus [None]
  - Mydriasis [None]
  - Hypotension [None]
